FAERS Safety Report 8756708 (Version 3)
Quarter: 2013Q1

REPORT INFORMATION
  Report Type: Spontaneous
  Country: AU (occurrence: AU)
  Receive Date: 20120828
  Receipt Date: 20130110
  Transmission Date: 20140127
  Serious: Yes (Other)
  Sender: FDA-Public Use
  Company Number: PHHY2012AU073655

PATIENT
  Sex: Male

DRUGS (2)
  1. SANDOSTATIN LAR [Suspect]
     Indication: ACROMEGALY
     Dosage: 20 MG, UNK
     Route: 030
     Dates: start: 2006
  2. PREDNISONE [Concomitant]
     Indication: PNEUMONIA VIRAL
     Dosage: UNK UKN, UNK

REACTIONS (3)
  - Pneumonia viral [Recovering/Resolving]
  - Pain in extremity [Recovering/Resolving]
  - Movement disorder [Unknown]
